FAERS Safety Report 9281855 (Version 1)
Quarter: 2013Q2

REPORT INFORMATION
  Report Type: Spontaneous
  Country: US (occurrence: US)
  Receive Date: 20130510
  Receipt Date: 20130510
  Transmission Date: 20140414
  Serious: No
  Sender: FDA-Public Use
  Company Number: US-009507513-1305USA001893

PATIENT
  Age: 61 Year
  Sex: Male

DRUGS (2)
  1. PEGINTRON [Suspect]
     Indication: HEPATITIS C
     Dosage: 120 MICROGRAM, QW
     Route: 058
     Dates: start: 20130426
  2. RIBASPHERE [Suspect]

REACTIONS (6)
  - Palpitations [Unknown]
  - Anxiety [Unknown]
  - Chest pain [Unknown]
  - Heart rate increased [Unknown]
  - Headache [Unknown]
  - Influenza like illness [Unknown]
